FAERS Safety Report 17458633 (Version 3)
Quarter: 2020Q2

REPORT INFORMATION
  Report Type: Spontaneous
  Country: FR (occurrence: FR)
  Receive Date: 20200225
  Receipt Date: 20200623
  Transmission Date: 20200713
  Serious: Yes (Hospitalization, Other)
  Sender: FDA-Public Use
  Company Number: FR-CANTON LABORATORIES, LLC-2080902

PATIENT
  Age: 51 Year
  Sex: Female

DRUGS (4)
  1. RIBAVIRIN. [Concomitant]
     Active Substance: RIBAVIRIN
     Route: 065
  2. NAPROSYN [Suspect]
     Active Substance: NAPROXEN
     Indication: MUSCULOSKELETAL PAIN
     Route: 065
  3. RITUXIMAB. [Suspect]
     Active Substance: RITUXIMAB
     Route: 042
     Dates: start: 2011
  4. METHROTREXATE [Suspect]
     Active Substance: METHOTREXATE
     Route: 065
     Dates: start: 2011

REACTIONS (12)
  - Nausea [Recovering/Resolving]
  - Drug intolerance [Unknown]
  - Alanine aminotransferase increased [Recovered/Resolved]
  - Alopecia [Unknown]
  - Antibody test positive [Recovering/Resolving]
  - Hepatitis E [Recovered/Resolved]
  - Jaundice [Recovering/Resolving]
  - Rheumatoid arthritis [Recovering/Resolving]
  - Aspartate aminotransferase increased [Recovered/Resolved]
  - Asthenia [Recovering/Resolving]
  - Vomiting [Recovering/Resolving]
  - Cholestasis [Recovering/Resolving]
